FAERS Safety Report 9645430 (Version 1)
Quarter: 2013Q4

REPORT INFORMATION
  Report Type: Spontaneous
  Country: GB (occurrence: None)
  Receive Date: 20131023
  Receipt Date: 20131023
  Transmission Date: 20140711
  Serious: Yes (Other)
  Sender: FDA-Public Use
  Company Number: AUR-APL-2013-08636

PATIENT
  Age: 61 Year
  Sex: Male
  Weight: 76.36 kg

DRUGS (3)
  1. AMOXICILLIN+CLAVULANIC ACID [Suspect]
     Indication: OTITIS MEDIA ACUTE
     Route: 048
     Dates: start: 20130910, end: 20130913
  2. ALISKIREN [Suspect]
     Indication: HYPERTENSION
     Dosage: 300 MG, 1 IN 1 D
     Route: 048
     Dates: end: 20130914
  3. LEVOTHYROXINE (LEVOTHYROXINE) [Concomitant]

REACTIONS (8)
  - Nausea [None]
  - Malaise [None]
  - Faeces discoloured [None]
  - Chromaturia [None]
  - Hepatomegaly [None]
  - Drug interaction [None]
  - Alanine aminotransferase increased [None]
  - Blood bilirubin increased [None]
